FAERS Safety Report 19109964 (Version 2)
Quarter: 2021Q2

REPORT INFORMATION
  Report Type: Spontaneous
  Country: US (occurrence: US)
  Receive Date: 20210408
  Receipt Date: 20210423
  Transmission Date: 20210717
  Serious: No
  Sender: FDA-Public Use
  Company Number: US-JNJFOC-20210358841

PATIENT
  Sex: Female

DRUGS (1)
  1. WOMENS ROGAINE UNSCENTED [Suspect]
     Active Substance: MINOXIDIL
     Indication: ALOPECIA
     Dosage: AS DIRECTED ONE A DAY?PRODUCT LAST ADMINISTRATION DATE: 22?MAR?2021
     Route: 061
     Dates: start: 20201222

REACTIONS (2)
  - Hair growth abnormal [Unknown]
  - Drug ineffective [Unknown]
